FAERS Safety Report 16672626 (Version 1)
Quarter: 2019Q3

REPORT INFORMATION
  Report Type: Spontaneous
  Country: GB (occurrence: GB)
  Receive Date: 20190806
  Receipt Date: 20190806
  Transmission Date: 20191004
  Serious: Yes (Other)
  Sender: FDA-Public Use
  Company Number: GB-CPL-001125

PATIENT
  Age: 35 Year
  Sex: Female

DRUGS (5)
  1. PARACETAMOL [Concomitant]
     Active Substance: ACETAMINOPHEN
  2. ONDANSETRON [Concomitant]
     Active Substance: ONDANSETRON
  3. DONEPEZIL. [Suspect]
     Active Substance: DONEPEZIL
     Indication: LACTATION STIMULATION THERAPY
     Route: 048
     Dates: start: 20171201, end: 20171203
  4. DALTEPARIN [Concomitant]
     Active Substance: DALTEPARIN
  5. DOMPERIDONE [Concomitant]
     Active Substance: DOMPERIDONE
     Indication: LACTATION STIMULATION THERAPY

REACTIONS (5)
  - Headache [Unknown]
  - Product dispensing error [Unknown]
  - Off label use [Unknown]
  - Hallucination [Recovered/Resolved]
  - Somnolence [Unknown]

NARRATIVE: CASE EVENT DATE: 20171202
